FAERS Safety Report 24631674 (Version 1)
Quarter: 2024Q4

REPORT INFORMATION
  Report Type: Spontaneous
  Country: JP (occurrence: None)
  Receive Date: 20241118
  Receipt Date: 20241118
  Transmission Date: 20250115
  Serious: Yes (Other)
  Sender: ALEXION PHARMACEUTICALS
  Company Number: JP-ASTRAZENECA-240123099_013120_P_1

PATIENT

DRUGS (1)
  1. DURVALUMAB [Suspect]
     Active Substance: DURVALUMAB
     Indication: Lung neoplasm malignant
     Dosage: DOSE UNKNOWN

REACTIONS (1)
  - Neuropathy peripheral [Unknown]
